FAERS Safety Report 9069421 (Version 2)
Quarter: 2013Q4

REPORT INFORMATION
  Report Type: Report from Study
  Country: CN (occurrence: CN)
  Receive Date: 20130215
  Receipt Date: 20131008
  Transmission Date: 20140711
  Serious: Yes (Hospitalization)
  Sender: FDA-Public Use
  Company Number: CN-GILEAD-2013-0069663

PATIENT
  Age: 44 Year
  Sex: Female

DRUGS (4)
  1. BLINDED ADEFOVIR DIPIVOXIL [Suspect]
     Indication: CHRONIC HEPATITIS B
     Dosage: UNK
     Dates: start: 20110927
  2. BLINDED TENOFOVIR DISOPROXIL FUMARATE [Suspect]
     Indication: CHRONIC HEPATITIS B
     Dosage: UNK
     Dates: start: 20110927
  3. VIREAD [Suspect]
     Indication: CHRONIC HEPATITIS B
     Dosage: UNK
     Dates: start: 20120828, end: 20121212
  4. VIREAD [Suspect]
     Dosage: UNK
     Dates: start: 20121219

REACTIONS (1)
  - Goitre [Recovered/Resolved]
